FAERS Safety Report 9008524 (Version 1)
Quarter: 2013Q1

REPORT INFORMATION
  Report Type: Spontaneous
  Country: US (occurrence: US)
  Receive Date: 20130111
  Receipt Date: 20130111
  Transmission Date: 20140127
  Serious: Yes (Hospitalization, Disabling)
  Sender: FDA-Public Use
  Company Number: US-009507513-1301USA003301

PATIENT
  Age: 71 Year
  Sex: Female

DRUGS (11)
  1. SINGULAIR [Suspect]
     Dosage: 10 MG PER DAY
     Route: 048
  2. ZYLORIC [Interacting]
     Dosage: 50 MG PER DAY
     Route: 048
  3. IMURAN [Interacting]
     Dosage: 50 MG PER DAY
     Route: 048
  4. IMURAN [Interacting]
     Dosage: 75 MG PER DAY
     Route: 048
  5. LANSOPRAZOLE [Concomitant]
     Dosage: 15 MG PER DAY
     Route: 048
  6. SOLU-MEDROL [Concomitant]
     Indication: ALLERGIC GRANULOMATOUS ANGIITIS
     Dosage: 1 G PER DAY
     Route: 042
  7. ALENDRONATE SODIUM [Concomitant]
     Indication: ASTHMA
     Route: 048
  8. LIPITOR [Concomitant]
     Indication: GASTROOESOPHAGEAL REFLUX DISEASE
     Route: 048
  9. THEOLONG [Concomitant]
     Indication: GOUT
     Dosage: 400 MG PER DAY
     Route: 048
  10. CELESTAMINE (BETAMETHASONE (+) DEXCHLORPHENIRAMINE MALEATE (+) FLUPHEN [Concomitant]
     Indication: HYPERCHOLESTEROLAEMIA
     Dosage: 2IUAX PER DAY
     Route: 048
  11. BONALON [Concomitant]
     Route: 048

REACTIONS (5)
  - Meningitis cryptococcal [Unknown]
  - Leukopenia [Unknown]
  - Anaemia [Unknown]
  - Allergic granulomatous angiitis [Unknown]
  - Drug interaction [Unknown]
